FAERS Safety Report 20308713 (Version 1)
Quarter: 2022Q1

REPORT INFORMATION
  Report Type: Spontaneous
  Country: CN (occurrence: CN)
  Receive Date: 20220107
  Receipt Date: 20220107
  Transmission Date: 20220424
  Serious: Yes (Other)
  Sender: FDA-Public Use
  Company Number: CN-BAXTER-2022BAX000207

PATIENT
  Age: 44 Year
  Sex: Female
  Weight: 70 kg

DRUGS (9)
  1. CYCLOPHOSPHAMIDE [Suspect]
     Active Substance: CYCLOPHOSPHAMIDE
     Indication: Lymphocytic leukaemia
     Route: 041
     Dates: start: 20211130, end: 20211203
  2. CYCLOPHOSPHAMIDE [Suspect]
     Active Substance: CYCLOPHOSPHAMIDE
     Indication: T-cell lymphoma
  3. SODIUM CHLORIDE [Suspect]
     Active Substance: SODIUM CHLORIDE
     Indication: Medication dilution
     Dosage: CYCLOPHOSPHAMIDE INJECTION 0.4G + SODIUM CHLORIDE (NS) 250ML
     Route: 041
     Dates: start: 20211130, end: 20211203
  4. SODIUM CHLORIDE [Suspect]
     Active Substance: SODIUM CHLORIDE
     Dosage: VINDESINE SULFATE INJECTION 4.8MG + SODIUM CHLORIDE (NS) 100ML
     Route: 041
     Dates: start: 20211204, end: 20211204
  5. DEXTROSE [Suspect]
     Active Substance: DEXTROSE
     Indication: Medication dilution
     Dosage: PIRARUBICIN HYDROCHLORIDE 20MG + GS 100ML
     Route: 041
     Dates: start: 20211204, end: 20211206
  6. VINDESINE SULFATE [Suspect]
     Active Substance: VINDESINE SULFATE
     Indication: Lymphocytic leukaemia
     Dosage: VINDESINE SULFATE 4.8MG + NS 100ML
     Route: 041
     Dates: start: 20211204, end: 20211204
  7. VINDESINE SULFATE [Suspect]
     Active Substance: VINDESINE SULFATE
     Indication: T-cell lymphoma
  8. PIRARUBICIN HYDROCHLORIDE [Suspect]
     Active Substance: PIRARUBICIN HYDROCHLORIDE
     Indication: Lymphocytic leukaemia
     Dosage: PIRARUBICIN HYDROCHLORIDE 20MG + GS 100ML
     Route: 041
     Dates: start: 20211204, end: 20211206
  9. PIRARUBICIN HYDROCHLORIDE [Suspect]
     Active Substance: PIRARUBICIN HYDROCHLORIDE
     Indication: T-cell lymphoma

REACTIONS (1)
  - Myelosuppression [Recovering/Resolving]

NARRATIVE: CASE EVENT DATE: 20211208
